FAERS Safety Report 15628795 (Version 3)
Quarter: 2019Q1

REPORT INFORMATION
  Report Type: Report from Study
  Country: US (occurrence: US)
  Receive Date: 20181116
  Receipt Date: 20190215
  Transmission Date: 20190417
  Serious: Yes (Death, Hospitalization)
  Sender: FDA-Public Use
  Company Number: US-ACTELION-A-US2017-158358

PATIENT
  Age: 81 Year
  Sex: Male

DRUGS (3)
  1. OPSUMIT [Suspect]
     Active Substance: MACITENTAN
     Dosage: 10 MG, QD
     Route: 048
  2. SILDENAFIL CITRATE. [Suspect]
     Active Substance: SILDENAFIL CITRATE
     Indication: PULMONARY ARTERIAL HYPERTENSION
     Dosage: 40 MG, 6X
     Route: 065
  3. OPSUMIT [Suspect]
     Active Substance: MACITENTAN
     Indication: PULMONARY ARTERIAL HYPERTENSION
     Dosage: 10 MG, QD
     Route: 048
     Dates: start: 20170705, end: 20190131

REACTIONS (7)
  - Musculoskeletal pain [Unknown]
  - Dyspnoea [Not Recovered/Not Resolved]
  - Fluid retention [Unknown]
  - Product dose omission [Unknown]
  - Death [Fatal]
  - Hospitalisation [Unknown]
  - Drug ineffective [Unknown]

NARRATIVE: CASE EVENT DATE: 2017
